FAERS Safety Report 5335436-8 (Version None)
Quarter: 2007Q2

REPORT INFORMATION
  Report Type: 
  Country: None (occurrence: None)
  Receive Date: 20070525
  Receipt Date: 20070516
  Transmission Date: 20071010
  Serious: Yes (Other)
  Sender: FDA-Public Use
  Company Number: DE-PFIZER INC-2007040259

PATIENT
  Sex: Male

DRUGS (1)
  1. SUTENT [Suspect]
     Dosage: FREQ:FOUR WEEKS ON , TWO WEEKS OFF
     Route: 048

REACTIONS (2)
  - DILATATION VENTRICULAR [None]
  - EJECTION FRACTION DECREASED [None]
